FAERS Safety Report 7637712-2 (Version None)
Quarter: 2011Q3

REPORT INFORMATION
  Report Type: 
  Country: None (occurrence: None)
  Receive Date: 20110726
  Receipt Date: 20090813
  Transmission Date: 20111222
  Serious: Yes (Life-Threatening, Hospitalization, Other)
  Sender: FDA-Public Use
  Company Number: PHHY2009GB30047

PATIENT
  Sex: Male

DRUGS (4)
  1. AMISULPRIDE [Concomitant]
     Indication: SCHIZOPHRENIA
     Dosage: 400 MG, QD
     Route: 048
  2. HYOSCINE [Concomitant]
     Indication: SALIVARY HYPERSECRETION
     Dosage: 300 UG, QD
     Route: 048
  3. OMEPRAZOLE [Concomitant]
     Indication: DYSPEPSIA
     Dosage: 20 MG, QD
     Route: 048
  4. CLOZAPINE [Suspect]
     Indication: SCHIZOPHRENIA
     Dosage: 250 MG, QD
     Route: 048
     Dates: start: 20080918

REACTIONS (4)
  - EMPYEMA [None]
  - MALAISE [None]
  - PLATELET COUNT INCREASED [None]
  - PNEUMOTHORAX [None]
